FAERS Safety Report 9852176 (Version 1)
Quarter: 2014Q1

REPORT INFORMATION
  Report Type: Spontaneous
  Country: US (occurrence: US)
  Receive Date: 20140129
  Receipt Date: 20140129
  Transmission Date: 20141002
  Serious: Yes (Other)
  Sender: FDA-Public Use
  Company Number: US-BRACCO-009302

PATIENT
  Age: 62 Year
  Sex: Male
  Weight: 118 kg

DRUGS (2)
  1. MULTIHANCE [Suspect]
     Indication: NUCLEAR MAGNETIC RESONANCE IMAGING BRAIN
     Route: 042
     Dates: start: 20130326, end: 20130326
  2. ATIVAN [Concomitant]
     Indication: CLAUSTROPHOBIA
     Dates: start: 201303

REACTIONS (1)
  - Anaphylactic reaction [Unknown]
